FAERS Safety Report 7658786-9 (Version None)
Quarter: 2011Q3

REPORT INFORMATION
  Report Type: 
  Country: None (occurrence: None)
  Receive Date: 20110805
  Receipt Date: 20110805
  Transmission Date: 20111222
  Serious: Yes (Hospitalization)
  Sender: FDA-Public Use
  Company Number: None

PATIENT
  Age: 34 Year
  Sex: Male
  Weight: 92 kg

DRUGS (8)
  1. TRIMETHOPRIM + SULFAMETHOXAZOLE [Suspect]
     Indication: SINUSITIS
     Dosage: 800/160
     Route: 048
  2. TRIMETHOPRIM + SULFAMETHOXAZOLE [Suspect]
     Indication: OEDEMA PERIPHERAL
     Dosage: 800/160
     Route: 048
  3. INSULIN ASPART [Concomitant]
     Route: 058
  4. INSULIN GLARGINE [Concomitant]
     Route: 058
  5. CLOPIDOGREL [Concomitant]
     Route: 048
  6. FUROSEMIDE [Concomitant]
     Route: 048
  7. SIMVASTATIN [Concomitant]
     Route: 048
  8. LISINOPRIL [Concomitant]
     Route: 048

REACTIONS (5)
  - DRUG HYPERSENSITIVITY [None]
  - PYREXIA [None]
  - PNEUMONIA [None]
  - LIVER FUNCTION TEST ABNORMAL [None]
  - PAIN IN EXTREMITY [None]
